FAERS Safety Report 6160767-1 (Version None)
Quarter: 2009Q2

REPORT INFORMATION
  Report Type: 
  Country: None (occurrence: None)
  Receive Date: 20090420
  Receipt Date: 20090414
  Transmission Date: 20091009
  Serious: Yes (Hospitalization, Disabling)
  Sender: FDA-Public Use
  Company Number: PHEH2009US02760

PATIENT
  Sex: Male
  Weight: 76.644 kg

DRUGS (1)
  1. EXJADE [Suspect]
     Indication: IRON OVERLOAD
     Dosage: 1500 MG, QD
     Route: 048
     Dates: start: 20090216, end: 20090305

REACTIONS (8)
  - CONTUSION [None]
  - DIARRHOEA [None]
  - HEADACHE [None]
  - HYPERBILIRUBINAEMIA [None]
  - MASTICATION DISORDER [None]
  - NAUSEA [None]
  - PAIN IN JAW [None]
  - VOMITING [None]
